FAERS Safety Report 8209499-6 (Version None)
Quarter: 2012Q1

REPORT INFORMATION
  Report Type: 
  Country: None (occurrence: None)
  Receive Date: 20120314
  Receipt Date: 20120305
  Transmission Date: 20120608
  Serious: Yes (Other)
  Sender: FDA-Public Use
  Company Number: US-ASTRAZENECA-2012SE13443

PATIENT
  Age: 62 Year
  Sex: Male

DRUGS (2)
  1. ANTIBIOTICS [Concomitant]
  2. TOPROL-XL [Suspect]
     Route: 048

REACTIONS (5)
  - MYOCARDIAL INFARCTION [None]
  - CYSTITIS NONINFECTIVE [None]
  - HAEMORRHOIDS [None]
  - PROSTATOMEGALY [None]
  - NEOPLASM MALIGNANT [None]
